FAERS Safety Report 8288336-8 (Version None)
Quarter: 2012Q2

REPORT INFORMATION
  Report Type: 
  Country: None (occurrence: None)
  Receive Date: 20120416
  Receipt Date: 20120410
  Transmission Date: 20120825
  Serious: Yes (Death)
  Sender: FDA-Public Use
  Company Number: US-PFIZER INC-2012090280

PATIENT
  Sex: Male

DRUGS (1)
  1. XALKORI [Suspect]
     Indication: MEDULLOBLASTOMA
     Dosage: 250 MG, 2X/DAY
     Dates: start: 20120305

REACTIONS (2)
  - COLITIS [None]
  - DEATH [None]
